FAERS Safety Report 10265988 (Version 4)
Quarter: 2015Q1

REPORT INFORMATION
  Report Type: Spontaneous
  Country: IL (occurrence: IL)
  Receive Date: 20140627
  Receipt Date: 20150121
  Transmission Date: 20150720
  Serious: Yes (Hospitalization, Other)
  Sender: FDA-Public Use
  Company Number: IL-VERTEX PHARMACEUTICALS (CANADA)-2014-002887

PATIENT
  Age: 48 Year
  Sex: Male

DRUGS (1)
  1. INCIVO [Suspect]
     Active Substance: TELAPREVIR
     Indication: HEPATITIS C
     Dosage: UNK
     Route: 048
     Dates: start: 20140601, end: 20140825

REACTIONS (10)
  - Subcutaneous abscess [Unknown]
  - Weight decreased [Not Recovered/Not Resolved]
  - Anaemia [Unknown]
  - Initial insomnia [Unknown]
  - Diarrhoea haemorrhagic [Unknown]
  - Alopecia [Not Recovered/Not Resolved]
  - Mood swings [Not Recovered/Not Resolved]
  - Night sweats [Unknown]
  - Depression [Not Recovered/Not Resolved]
  - Aggression [Unknown]

NARRATIVE: CASE EVENT DATE: 2014
